FAERS Safety Report 6215714-0 (Version None)
Quarter: 2009Q2

REPORT INFORMATION
  Report Type: 
  Country: None (occurrence: None)
  Receive Date: 20090605
  Receipt Date: 20090525
  Transmission Date: 20091009
  Serious: Yes (Hospitalization, Other)
  Sender: FDA-Public Use
  Company Number: IN-BAYER-200921894GPV

PATIENT
  Age: 23 Year
  Sex: Male

DRUGS (2)
  1. CIPROFLOXACIN [Suspect]
     Indication: TYPHOID FEVER
     Dosage: TOTAL DAILY DOSE: 1500 MG
     Route: 048
  2. CHLORAMPHENICOL [Concomitant]
     Indication: TYPHOID FEVER
     Route: 051

REACTIONS (10)
  - CATATONIA [None]
  - DISTURBANCE IN ATTENTION [None]
  - LETHARGY [None]
  - MUSCLE RIGIDITY [None]
  - MUTISM [None]
  - POSTURING [None]
  - SOMNOLENCE [None]
  - STIFF-MAN SYNDROME [None]
  - UNRESPONSIVE TO STIMULI [None]
  - WAXY FLEXIBILITY [None]
